FAERS Safety Report 4479069-4 (Version None)
Quarter: 2004Q4

REPORT INFORMATION
  Report Type: 
  Country: None (occurrence: None)
  Receive Date: 20041015
  Receipt Date: 20041001
  Transmission Date: 20050328
  Serious: Yes (Hospitalization)
  Sender: FDA-Public Use
  Company Number: 2004-0007579

PATIENT
  Age: 37 Year
  Sex: Male
  Weight: 62 kg

DRUGS (3)
  1. VIREAD [Suspect]
     Indication: HIV INFECTION
     Dosage: 300 MG, 1 IN 1 D, ORAL
     Route: 048
     Dates: start: 20021120, end: 20040724
  2. CRIXIVAN [Suspect]
     Dosage: ORAL
     Route: 048
     Dates: start: 20020930, end: 20040729
  3. EPIVIR [Suspect]
     Dosage: ORAL
     Route: 048
     Dates: start: 20020930, end: 20040729

REACTIONS (2)
  - NEPHROLITHIASIS [None]
  - PYREXIA [None]
